FAERS Safety Report 18211063 (Version 7)
Quarter: 2024Q1

REPORT INFORMATION
  Report Type: Other
  Country: DE (occurrence: None)
  Receive Date: 20200830
  Receipt Date: 20240219
  Transmission Date: 20240410
  Serious: Yes (Hospitalization, Other)
  Sender: FDA-Public Use
  Company Number: DE-ROCHE-2664713

PATIENT
  Age: 46 Year
  Sex: Female
  Weight: 47 kg

DRUGS (41)
  1. OCREVUS [Suspect]
     Active Substance: OCRELIZUMAB
     Indication: Relapsing multiple sclerosis
     Route: 042
     Dates: start: 20190327, end: 20200311
  2. OCREVUS [Suspect]
     Active Substance: OCRELIZUMAB
     Route: 042
     Dates: start: 20180919, end: 20181004
  3. EBASTINE [Concomitant]
     Active Substance: EBASTINE
     Route: 048
     Dates: start: 20180918, end: 20180920
  4. EBASTINE [Concomitant]
     Active Substance: EBASTINE
     Route: 048
     Dates: start: 20181003, end: 20181005
  5. EBASTINE [Concomitant]
     Active Substance: EBASTINE
     Route: 048
     Dates: start: 20190326, end: 20190328
  6. PREDNISOLONE [Concomitant]
     Active Substance: PREDNISOLONE
     Indication: Thrombosis
     Route: 042
     Dates: start: 20190327, end: 20190327
  7. PREDNISOLONE [Concomitant]
     Active Substance: PREDNISOLONE
     Route: 042
     Dates: start: 20181004, end: 20181004
  8. PREDNISOLONE [Concomitant]
     Active Substance: PREDNISOLONE
     Route: 042
     Dates: start: 20180919, end: 20180919
  9. DREISAVIT N [Concomitant]
     Indication: Vitamin B complex deficiency
     Route: 048
  10. DREISAVIT N [Concomitant]
     Indication: Vitamin C deficiency
  11. TACROLIMUS [Concomitant]
     Active Substance: TACROLIMUS
     Route: 048
  12. SPASMEX (GERMANY) [Concomitant]
     Indication: Muscle spasticity
     Route: 048
  13. ASPIRIN [Concomitant]
     Active Substance: ASPIRIN
     Route: 048
     Dates: end: 201912
  14. MYFORTIC [Concomitant]
     Active Substance: MYCOPHENOLATE SODIUM
     Route: 048
  15. EVUSHELD [Concomitant]
     Active Substance: CILGAVIMAB\TIXAGEVIMAB
     Indication: COVID-19 prophylaxis
     Route: 030
     Dates: start: 20220408, end: 20220408
  16. PFIZER-BIONTECH COVID-19 VACCINE [Concomitant]
     Active Substance: TOZINAMERAN
     Indication: COVID-19 prophylaxis
     Route: 030
     Dates: start: 20210811, end: 20210811
  17. PFIZER-BIONTECH COVID-19 VACCINE [Concomitant]
     Active Substance: TOZINAMERAN
     Route: 030
     Dates: start: 20210602, end: 20210602
  18. PFIZER-BIONTECH COVID-19 VACCINE [Concomitant]
     Active Substance: TOZINAMERAN
     Route: 030
     Dates: start: 20210623, end: 20210623
  19. RANITIDINE [Concomitant]
     Active Substance: RANITIDINE
     Route: 048
     Dates: start: 20190326, end: 20190328
  20. RANITIDINE [Concomitant]
     Active Substance: RANITIDINE
     Route: 048
     Dates: start: 20180918, end: 20180920
  21. RANITIDINE [Concomitant]
     Active Substance: RANITIDINE
     Route: 048
     Dates: start: 20181003, end: 20181005
  22. MOVICOL [Concomitant]
     Active Substance: POLYETHYLENE GLYCOL 3350\POTASSIUM CHLORIDE\SODIUM BICARBONATE\SODIUM CHLORIDE
     Indication: Constipation
     Dosage: DEFINITION OF THE INTERVAL: AS REQUIRED
     Route: 048
  23. LEVOTHYROXINE SODIUM [Concomitant]
     Active Substance: LEVOTHYROXINE SODIUM
     Indication: Hypothyroidism
     Route: 048
     Dates: start: 201912
  24. COTRIM [Concomitant]
     Active Substance: SULFAMETHOXAZOLE\TRIMETHOPRIM
     Route: 048
  25. VIMPAT [Concomitant]
     Active Substance: LACOSAMIDE
     Indication: Epilepsy
     Route: 048
     Dates: start: 202009
  26. CHOLECALCIFEROL [Concomitant]
     Active Substance: CHOLECALCIFEROL
     Indication: Vitamin D deficiency
     Route: 048
  27. INNOHEP [Concomitant]
     Active Substance: TINZAPARIN SODIUM
     Route: 058
     Dates: start: 202006
  28. HEPARIN [Concomitant]
     Active Substance: HEPARIN SODIUM
  29. RENVELA [Concomitant]
     Active Substance: SEVELAMER CARBONATE
     Route: 048
  30. RAMIPRIL [Concomitant]
     Active Substance: RAMIPRIL
     Indication: Hypertension
     Route: 048
  31. SIMVASTATIN [Concomitant]
     Active Substance: SIMVASTATIN
     Indication: Blood cholesterol decreased
     Route: 048
  32. ARANESP [Concomitant]
     Active Substance: DARBEPOETIN ALFA
     Route: 058
     Dates: start: 202006
  33. MYFENAX (GERMANY) [Concomitant]
     Route: 048
  34. PANTOZOL [Concomitant]
     Active Substance: PANTOPRAZOLE SODIUM
     Route: 048
  35. PROGRAF [Concomitant]
     Active Substance: TACROLIMUS
     Route: 048
  36. TORSEMIDE [Concomitant]
     Active Substance: TORSEMIDE
     Indication: Hypertension
     Route: 048
  37. FLUVASTATIN [Concomitant]
     Active Substance: FLUVASTATIN SODIUM
     Indication: Hypercholesterolaemia
     Route: 048
  38. NATALIZUMAB [Concomitant]
     Active Substance: NATALIZUMAB
     Dates: start: 201501, end: 201612
  39. INTERFERON BETA-1B [Concomitant]
     Active Substance: INTERFERON BETA-1B
     Dates: start: 1996, end: 201409
  40. RENAGEL [Concomitant]
     Active Substance: SEVELAMER HYDROCHLORIDE
     Route: 048
  41. DACLIZUMAB [Concomitant]
     Active Substance: DACLIZUMAB
     Dates: start: 201701, end: 201803

REACTIONS (8)
  - Deep vein thrombosis postoperative [Unknown]
  - Pyrexia [Recovered/Resolved]
  - Post procedural haemorrhage [Unknown]
  - Renal failure [Unknown]
  - Epilepsy [Unknown]
  - Renal transplant failure [Recovered/Resolved]
  - Urinary tract infection [Recovered/Resolved]
  - May-Thurner syndrome [Unknown]

NARRATIVE: CASE EVENT DATE: 20200601
